FAERS Safety Report 6653391-5 (Version None)
Quarter: 2010Q1

REPORT INFORMATION
  Report Type: 
  Country: None (occurrence: None)
  Receive Date: 20100317
  Receipt Date: 20100317
  Transmission Date: 20100710
  Serious: No
  Sender: FDA-Public Use
  Company Number: None

PATIENT
  Age: 77 Year
  Sex: Male

DRUGS (3)
  1. AUGMENTIN [Suspect]
     Dates: start: 20080730, end: 20080802
  2. KEFLEX [Suspect]
     Dates: start: 20080731, end: 20080812
  3. KEFLEX [Suspect]
     Dates: start: 20080902, end: 20080912

REACTIONS (6)
  - HEPATIC CIRRHOSIS [None]
  - HEPATIC STEATOSIS [None]
  - HEPATITIS ALCOHOLIC [None]
  - LIVER INJURY [None]
  - PHLEBOSCLEROSIS [None]
  - RASH [None]
